FAERS Safety Report 5602694-1 (Version None)
Quarter: 2008Q1

REPORT INFORMATION
  Report Type: 
  Country: None (occurrence: None)
  Receive Date: 20080125
  Receipt Date: 20080114
  Transmission Date: 20080703
  Serious: Yes (Hospitalization)
  Sender: FDA-Public Use
  Company Number: FR-GILEAD-2007-0014730

PATIENT
  Sex: Male
  Weight: 59 kg

DRUGS (4)
  1. TRUVADA [Suspect]
     Indication: HIV INFECTION
     Route: 048
     Dates: start: 20071018, end: 20071218
  2. KALETRA [Concomitant]
     Indication: HIV INFECTION
     Route: 048
     Dates: start: 20071018, end: 20071218
  3. PENTACARINAT [Concomitant]
     Indication: ANTIFUNGAL PROPHYLAXIS
     Dates: start: 20071009
  4. COMBIVIR [Concomitant]
     Indication: HIV INFECTION
     Route: 048
     Dates: start: 20071218, end: 20071228

REACTIONS (6)
  - HEADACHE [None]
  - HYPERHIDROSIS [None]
  - MALAISE [None]
  - MEDIASTINUM NEOPLASM [None]
  - SYNCOPE [None]
  - VERTIGO [None]
